FAERS Safety Report 9230551 (Version 1)
Quarter: 2013Q2

REPORT INFORMATION
  Report Type: Spontaneous
  Country: US (occurrence: US)
  Receive Date: 20130415
  Receipt Date: 20130415
  Transmission Date: 20140414
  Serious: No
  Sender: FDA-Public Use
  Company Number: US-009507513-1304USA006658

PATIENT
  Age: 80 Year
  Sex: Female

DRUGS (1)
  1. DR. SCHOLL^S ODOR DESTROYERS ALL DAY DEODORANT POWDER [Suspect]
     Indication: PRODUCT USED FOR UNKNOWN INDICATION
     Dosage: UNK, UNKNOWN
     Route: 061

REACTIONS (2)
  - Sticky skin [Unknown]
  - Drug ineffective for unapproved indication [Unknown]
